FAERS Safety Report 11434064 (Version 1)
Quarter: 2015Q3

REPORT INFORMATION
  Report Type: Spontaneous
  Country: US (occurrence: None)
  Receive Date: 20150828
  Receipt Date: 20150828
  Transmission Date: 20151125
  Serious: Yes (Disabling)
  Sender: FDA-Public Use
  Company Number: None

PATIENT
  Age: 56 Year
  Sex: Male
  Weight: 111.13 kg

DRUGS (5)
  1. NORCO [Concomitant]
     Active Substance: ACETAMINOPHEN\HYDROCODONE BITARTRATE
  2. PREVACID [Concomitant]
     Active Substance: LANSOPRAZOLE
  3. COUMADIN [Concomitant]
     Active Substance: WARFARIN SODIUM
  4. LOVENOX [Suspect]
     Active Substance: ENOXAPARIN SODIUM
     Indication: THROMBOSIS PROPHYLAXIS
     Dosage: GIVEN INTO/UNDER THE SKIN
     Route: 042
     Dates: start: 20150818, end: 20150826
  5. MULTIVITAMIN [Concomitant]
     Active Substance: VITAMINS

REACTIONS (4)
  - Pruritus [None]
  - Rash [None]
  - Dyspnoea [None]
  - Skin haemorrhage [None]

NARRATIVE: CASE EVENT DATE: 20150826
